FAERS Safety Report 10534372 (Version 2)
Quarter: 2014Q4

REPORT INFORMATION
  Report Type: Report from Study
  Country: JP (occurrence: JP)
  Receive Date: 20141022
  Receipt Date: 20141112
  Transmission Date: 20150529
  Serious: Yes (Death, Hospitalization)
  Sender: FDA-Public Use
  Company Number: JP-SA-2014SA142764

PATIENT
  Sex: Male

DRUGS (8)
  1. DEXAMETHASONE. [Suspect]
     Active Substance: DEXAMETHASONE
     Indication: HORMONE-REFRACTORY PROSTATE CANCER
     Dosage: ON DAYS 1-3 OF 21 DAY CYCKE
     Route: 065
  2. HYDROCORTISONE SALT NOT SPECIFIED [Suspect]
     Active Substance: HYDROCORTISONE
     Indication: HORMONE-REFRACTORY PROSTATE CANCER
     Dosage: 30 MG IN MORNING AND 10 MG IN EVENING; FROM DAY 1 TO 21 OF EVERY 21 DAY CYCLE
     Route: 065
  3. DOCETAXEL. [Suspect]
     Active Substance: DOCETAXEL
     Indication: PROSTATE CANCER
     Dosage: ADMINISTERED FOR 1 H ON DAY 2
     Route: 042
  4. ESTRAMUSTINE PHOSPHATE [Suspect]
     Active Substance: ESTRAMUSTINE PHOSPHATE
     Indication: HORMONE-REFRACTORY PROSTATE CANCER
     Dosage: ONLY FIRST 5 DAYS OF EACH 21 DAY CYCLE; 560 MG ADMINISTERED DAILY
     Route: 065
  5. DOCETAXEL. [Suspect]
     Active Substance: DOCETAXEL
     Indication: PROSTATE CANCER
     Dosage: ADMINISTERED FOR 1 H ON DAY 2
     Route: 042
  6. DEXAMETHASONE. [Suspect]
     Active Substance: DEXAMETHASONE
     Indication: HORMONE-REFRACTORY PROSTATE CANCER
     Dosage: ON DAYS 1-3 OF 21 DAY CYCLE
     Route: 065
  7. ESTRAMUSTINE PHOSPHATE [Suspect]
     Active Substance: ESTRAMUSTINE PHOSPHATE
     Indication: HORMONE-REFRACTORY PROSTATE CANCER
     Dosage: ONLY FIRST 5 DAYS OF EACH 21 DAY CYCLE; 560 MG DAILY
     Route: 065
  8. HYDROCORTISONE SALT NOT SPECIFIED [Suspect]
     Active Substance: HYDROCORTISONE
     Indication: HORMONE-REFRACTORY PROSTATE CANCER
     Dosage: 30 MG IN MORNING AND 10 MG IN EVENING; FROM DAY 1 TO 21 OF EVERY 21 DAY CYCLE
     Route: 065

REACTIONS (4)
  - Pyrexia [Fatal]
  - Interstitial lung disease [Fatal]
  - Respiratory disorder [Fatal]
  - Pleural effusion [Fatal]
